FAERS Safety Report 8002230-9 (Version None)
Quarter: 2011Q4

REPORT INFORMATION
  Report Type: 
  Country: None (occurrence: None)
  Receive Date: 20111222
  Receipt Date: 20110101
  Transmission Date: 20120403
  Serious: No
  Sender: FDA-Public Use
  Company Number: US-GLAXOSMITHKLINE-A0902707A

PATIENT
  Age: 40 Year
  Sex: Female

DRUGS (2)
  1. NICOTINE [Suspect]
     Indication: EX-TOBACCO USER
  2. NICORETTE [Suspect]
     Indication: EX-TOBACCO USER

REACTIONS (1)
  - MALAISE [None]
